FAERS Safety Report 19770679 (Version 3)
Quarter: 2021Q4

REPORT INFORMATION
  Report Type: Spontaneous
  Country: US (occurrence: None)
  Receive Date: 20210831
  Receipt Date: 20211110
  Transmission Date: 20220304
  Serious: No
  Sender: FDA-Public Use
  Company Number: US-MERCK HEALTHCARE KGAA-9256658

PATIENT
  Age: 62 Year
  Sex: Female

DRUGS (1)
  1. BAVENCIO [Suspect]
     Active Substance: AVELUMAB
     Indication: Renal cancer
     Route: 042

REACTIONS (3)
  - Tendonitis [Recovered/Resolved]
  - Fatigue [Unknown]
  - Cough [Unknown]

NARRATIVE: CASE EVENT DATE: 20210701
